FAERS Safety Report 13826276 (Version 1)
Quarter: 2017Q3

REPORT INFORMATION
  Report Type: Spontaneous
  Country: FR (occurrence: FR)
  Receive Date: 20170802
  Receipt Date: 20170802
  Transmission Date: 20171127
  Serious: Yes (Hospitalization)
  Sender: FDA-Public Use
  Company Number: FR-ABBVIE-17P-056-2059265-00

PATIENT
  Age: 15 Year
  Sex: Male

DRUGS (2)
  1. TEGRETOL [Suspect]
     Active Substance: CARBAMAZEPINE
     Indication: PARTIAL SEIZURES
     Route: 048
     Dates: start: 20120101, end: 20170602
  2. DEPAKINE CHRONO [Suspect]
     Active Substance: VALPROATE SODIUM
     Indication: PARTIAL SEIZURES
     Dosage: EXTENDED RELEASE TABLET
     Route: 048
     Dates: start: 20160101, end: 20170602

REACTIONS (1)
  - Haemorrhagic necrotic pancreatitis [Recovering/Resolving]

NARRATIVE: CASE EVENT DATE: 20170602
